FAERS Safety Report 13408045 (Version 4)
Quarter: 2018Q3

REPORT INFORMATION
  Report Type: Spontaneous
  Country: DE (occurrence: DE)
  Receive Date: 20170406
  Receipt Date: 20180730
  Transmission Date: 20181010
  Serious: Yes (Other)
  Sender: FDA-Public Use
  Company Number: DE-ACCORD-049863

PATIENT
  Age: 68 Year
  Sex: Male
  Weight: 90 kg

DRUGS (16)
  1. MELPERONE [Concomitant]
     Active Substance: MELPERONE
     Indication: SLEEP DISORDER
     Dosage: DAILY DOSE: 50 MG MILLGRAM(S) EVERY DAYS;1?0?0
     Route: 048
     Dates: start: 20170116, end: 20170307
  2. REKAWAN [Concomitant]
     Active Substance: POTASSIUM CHLORIDE
  3. MONO?EMBOLEX [Concomitant]
     Active Substance: CERTOPARIN SODIUM
     Indication: PROPHYLAXIS
     Dosage: DAILY DOSE: 3000 IU INTERNATIONAL UNIT(S) EVERY DAYS
     Route: 058
     Dates: start: 20170116, end: 20170307
  4. COTRIM FORTE [Concomitant]
     Active Substance: SULFAMETHOXAZOLE\TRIMETHOPRIM
     Indication: HYPERTENSION
     Dosage: DAILY DOSE: 1 DF DOSAGE FORM EVERY 2 DAYS
     Route: 048
     Dates: start: 20170125, end: 20170207
  5. PANTOZOL [Concomitant]
     Active Substance: PANTOPRAZOLE SODIUM
     Dosage: 20MG 1?0?0
  6. JANUVIA [Concomitant]
     Active Substance: SITAGLIPTIN PHOSPHATE
     Indication: DIABETES MELLITUS
     Dosage: DAILY DOSE: 100 MG MILLGRAM(S) EVERY DAYS
     Route: 048
     Dates: start: 20170116, end: 20170307
  7. NOVALGIN (METAMIZOLE SODIUM) [Concomitant]
     Active Substance: METAMIZOLE SODIUM
     Indication: PROCEDURAL HEADACHE
     Dosage: 2000 MG, QID, 4X1/DAY
     Route: 048
     Dates: start: 20170116, end: 20170307
  8. TEMOZOLOMIDE. [Suspect]
     Active Substance: TEMOZOLOMIDE
     Indication: GLIOBLASTOMA
     Route: 048
     Dates: start: 20170125
  9. GRANISETRON [Concomitant]
     Active Substance: GRANISETRON
  10. NOVALGIN (METAMIZOLE SODIUM) [Concomitant]
     Active Substance: METAMIZOLE SODIUM
     Indication: PAIN
     Dosage: DAILY DOSE: 2000 MG MILLGRAM(S) EVERY DAYS
     Route: 048
     Dates: start: 20170116, end: 20170307
  11. DULCOLAX NOS [Concomitant]
     Active Substance: BISACODYL OR DOCUSATE SODIUM
     Dosage: 2 CAPSULES EVERY 2 DAYS
  12. HYDROCHLOROTHIAZIDE. [Concomitant]
     Active Substance: HYDROCHLOROTHIAZIDE
     Indication: HYPERTENSION
     Dosage: DAILY DOSE: 12.5 MG MILLGRAM(S) EVERY DAYS
     Route: 048
     Dates: start: 20170116, end: 20170307
  13. CONCOR [Concomitant]
     Active Substance: BISOPROLOL FUMARATE
     Indication: HYPERTENSION
     Dosage: DAILY DOSE: 2.5 MG MILLGRAM(S) EVERY DAYS
     Route: 048
     Dates: start: 20170116, end: 20170307
  14. DEXAMETHASONE. [Concomitant]
     Active Substance: DEXAMETHASONE
     Indication: PROPHYLAXIS
     Dosage: DEXAMETHASONE WAS REDUCED FROM 8MG TO 2MG PER DAY
     Route: 048
  15. BIFITERAL [Concomitant]
     Active Substance: LACTULOSE
     Dosage: 1?1?1
  16. TAVOR [Concomitant]
     Dosage: 1 MG ON DEMAND

REACTIONS (15)
  - Hepatic enzyme increased [Recovering/Resolving]
  - Platelet count decreased [Recovered/Resolved]
  - Drug-induced liver injury [Recovering/Resolving]
  - Agitation [Recovered/Resolved]
  - Gait inability [Unknown]
  - Confusional state [Recovered/Resolved]
  - Disorientation [Unknown]
  - General physical health deterioration [Unknown]
  - C-reactive protein abnormal [Unknown]
  - Cholelithiasis [Unknown]
  - Constipation [Unknown]
  - Jaundice [Recovering/Resolving]
  - Hemiplegia [Unknown]
  - White blood cell count decreased [Recovered/Resolved]
  - Procedural headache [Recovering/Resolving]

NARRATIVE: CASE EVENT DATE: 2017
